FAERS Safety Report 20997265 (Version 2)
Quarter: 2022Q3

REPORT INFORMATION
  Report Type: Report from Study
  Country: CA (occurrence: CA)
  Receive Date: 20220623
  Receipt Date: 20220713
  Transmission Date: 20221026
  Serious: Yes (Hospitalization)
  Sender: FDA-Public Use
  Company Number: CA-ABBVIE-22K-028-4442986-00

PATIENT
  Sex: Male

DRUGS (1)
  1. RINVOQ [Suspect]
     Active Substance: UPADACITINIB
     Indication: Dermatitis atopic
     Route: 048
     Dates: end: 2022

REACTIONS (4)
  - Muscular weakness [Unknown]
  - Skin disorder [Unknown]
  - Superficial vein thrombosis [Unknown]
  - Infection [Unknown]

NARRATIVE: CASE EVENT DATE: 20220101
